FAERS Safety Report 16716399 (Version 3)
Quarter: 2019Q3

REPORT INFORMATION
  Report Type: Spontaneous
  Country: US (occurrence: US)
  Receive Date: 20190819
  Receipt Date: 20190925
  Transmission Date: 20191005
  Serious: No
  Sender: FDA-Public Use
  Company Number: US-BIOGEN-2019BI00767689

PATIENT
  Sex: Female

DRUGS (2)
  1. PLEGRIDY [Suspect]
     Active Substance: PEGINTERFERON BETA-1A
     Indication: MULTIPLE SCLEROSIS
     Route: 065
     Dates: start: 20161021, end: 20190101
  2. TYSABRI [Suspect]
     Active Substance: NATALIZUMAB
     Indication: MULTIPLE SCLEROSIS
     Route: 065

REACTIONS (9)
  - Vertigo [Recovered/Resolved]
  - Multiple sclerosis relapse [Unknown]
  - White blood cell count decreased [Unknown]
  - Orthopnoea [Recovered/Resolved]
  - Oedema peripheral [Recovered/Resolved]
  - Confusional state [Unknown]
  - Multiple sclerosis [Unknown]
  - Hypersensitivity [Recovered/Resolved]
  - Neutrophil count decreased [Recovered/Resolved]
